FAERS Safety Report 6519138-8 (Version None)
Quarter: 2009Q4

REPORT INFORMATION
  Report Type: 
  Country: None (occurrence: None)
  Receive Date: 20091228
  Receipt Date: 20091223
  Transmission Date: 20100525
  Serious: Yes (Death)
  Sender: FDA-Public Use
  Company Number: US-ASTRAZENECA-2009SE31379

PATIENT
  Age: 733 Month
  Sex: Male

DRUGS (1)
  1. SYMBICORT [Suspect]
     Indication: DYSPNOEA
     Route: 055

REACTIONS (1)
  - LUNG NEOPLASM MALIGNANT [None]
